FAERS Safety Report 21578400 (Version 1)
Quarter: 2022Q4

REPORT INFORMATION
  Report Type: Spontaneous
  Country: GB (occurrence: GB)
  Receive Date: 20221110
  Receipt Date: 20221110
  Transmission Date: 20230113
  Serious: Yes (Other)
  Sender: FDA-Public Use
  Company Number: GB-BAXTER-2022BAX023837

PATIENT
  Age: 83 Year
  Sex: Male
  Weight: 84 kg

DRUGS (19)
  1. METRONIDAZOLE [Suspect]
     Active Substance: METRONIDAZOLE
     Dosage: 400 MILLIGRAMS (MG) THREE TIMES A DAY
     Route: 065
     Dates: start: 20220818
  2. ALLOPURINOL [Concomitant]
     Active Substance: ALLOPURINOL
     Dosage: 2 DOSAGE FORM (DF) TWO DAILY
     Route: 065
     Dates: start: 20210422
  3. CEPHALEXIN [Concomitant]
     Active Substance: CEPHALEXIN
     Dosage: 1 DOSAGE FORM (DF) THREE TIMES A DAY
     Route: 065
     Dates: start: 20220818, end: 20220825
  4. DOXAZOSIN [Concomitant]
     Active Substance: DOXAZOSIN MESYLATE
     Dosage: 1 DOSAGE FORM (DF) ONCE DAILY
     Route: 065
     Dates: start: 20210422
  5. FERROUS FUMARATE [Concomitant]
     Active Substance: FERROUS FUMARATE
     Dosage: 1 DOSAGE FORM (DF) 2-3 TIMES/DAY FOR 3 MONTHS TO TOP UP
     Route: 065
     Dates: start: 20220721
  6. FINASTERIDE [Concomitant]
     Active Substance: FINASTERIDE
     Dosage: 1 DOSAGE FORM (DF) ONCE DAILY
     Route: 065
     Dates: start: 20210422
  7. BECLOMETHASONE\FORMOTEROL [Concomitant]
     Active Substance: BECLOMETHASONE\FORMOTEROL
     Dosage: 1 DOSAGE FORM (DF) TWICE DAILY
     Route: 065
     Dates: start: 20210422
  8. FUROSEMIDE [Concomitant]
     Active Substance: FUROSEMIDE
     Dosage: 1 DOSAGE FORM (DF) ONCE DAILY, EACH MORNING (NOTE LOWER DOSE)
     Route: 065
     Dates: start: 20211229
  9. INDAPAMIDE [Concomitant]
     Active Substance: INDAPAMIDE
     Dosage: 1 DOSAGE FORM (DF) ONCE DAILY
     Route: 065
     Dates: start: 20210422
  10. LANSOPRAZOLE [Concomitant]
     Active Substance: LANSOPRAZOLE
     Dosage: 1 DOSAGE FORM (DF) ONCE DAILY (EACH MORNING)
     Route: 065
     Dates: start: 20210422
  11. LATANOPROST [Concomitant]
     Active Substance: LATANOPROST
     Dosage: 1 DOSAGE FORM (DF) ONCE DAILY (AT NIGHT TO BOTH EYES)
     Route: 065
     Dates: start: 20210422
  12. LISINOPRIL [Concomitant]
     Active Substance: LISINOPRIL
     Dosage: 1 DOSAGE FORM (DF) ONCE DAILY
     Route: 065
     Dates: start: 20210422
  13. NEVANAC [Concomitant]
     Active Substance: NEPAFENAC
     Dosage: 1 DOSAGE FORM (DF) THREE TIMES A DAY (RIGHT EYE FOR 3 MONTHS)
     Route: 065
     Dates: start: 20221003
  14. PRED FORTE [Concomitant]
     Active Substance: PREDNISOLONE ACETATE
     Dosage: 1 DOSAGE FORM (DF) FOUR TIMES A DAY (RIGHT EYE FOR 3 MONTHS)
     Route: 065
     Dates: start: 20221003
  15. ALBUTEROL [Concomitant]
     Active Substance: ALBUTEROL
     Dosage: AS DIRECTED
     Route: 065
     Dates: start: 20210422
  16. SERTRALINE [Concomitant]
     Active Substance: SERTRALINE HYDROCHLORIDE
     Dosage: 1 DOSAGE FORM (DF) ONCE DAILY
     Route: 065
     Dates: start: 20210422
  17. TAMSULOSIN HYDROCHLORIDE [Concomitant]
     Active Substance: TAMSULOSIN HYDROCHLORIDE
     Dosage: 1 DOSAGE FORM (DF) ONCE DAILY
     Route: 065
     Dates: start: 20210422
  18. WARFARIN SODIUM [Concomitant]
     Active Substance: WARFARIN SODIUM
     Dosage: AS DIRECTED
     Route: 065
     Dates: start: 20210422
  19. MINERAL OIL\PARAFFIN [Concomitant]
     Active Substance: MINERAL OIL\PARAFFIN
     Dosage: 2-3 DAILY AS A MOISTERISER
     Route: 065
     Dates: start: 20211110

REACTIONS (1)
  - Vision blurred [Recovered/Resolved]
